FAERS Safety Report 7978844-9 (Version None)
Quarter: 2011Q4

REPORT INFORMATION
  Report Type: 
  Country: None (occurrence: None)
  Receive Date: 20111214
  Receipt Date: 20111206
  Transmission Date: 20120403
  Serious: Yes (Hospitalization, Other)
  Sender: FDA-Public Use
  Company Number: US-BRISTOL-MYERS SQUIBB COMPANY-16273583

PATIENT
  Sex: Female
  Weight: 68 kg

DRUGS (14)
  1. LEVEMIR [Concomitant]
  2. SYNTHROID [Concomitant]
  3. VITAMIN E [Concomitant]
  4. MULTI-VITAMIN [Concomitant]
  5. HUMALOG [Concomitant]
  6. COZAAR [Concomitant]
  7. ASCORBIC ACID [Concomitant]
  8. CALCIUM + VITAMIN D [Concomitant]
  9. FOLIC ACID [Concomitant]
  10. FISH OIL [Concomitant]
  11. METFORMIN HCL [Suspect]
     Indication: DIABETES MELLITUS
  12. LIPITOR [Concomitant]
  13. VITAMIN B COMPLEX CAP [Concomitant]
  14. CHONDROITIN SULFATE + GLUCOSAMINE [Concomitant]

REACTIONS (1)
  - CEREBROVASCULAR ACCIDENT [None]
